FAERS Safety Report 6895125-5 (Version None)
Quarter: 2010Q3

REPORT INFORMATION
  Report Type: 
  Country: None (occurrence: None)
  Receive Date: 20100802
  Receipt Date: 20100727
  Transmission Date: 20110219
  Serious: Yes (Death)
  Sender: FDA-Public Use
  Company Number: CHPA2010US12176

PATIENT
  Age: 7 Year
  Sex: Male

DRUGS (1)
  1. EX-LAX REG STR CHOCOLATED LAX PCS SEN (NCH) [Suspect]
     Dosage: UNK,UNK
     Route: 048
     Dates: start: 20100727, end: 20100727

REACTIONS (3)
  - ABDOMINAL PAIN UPPER [None]
  - ACCIDENTAL DRUG INTAKE BY CHILD [None]
  - ACCIDENTAL OVERDOSE [None]
